FAERS Safety Report 4519260-1 (Version None)
Quarter: 2004Q4

REPORT INFORMATION
  Report Type: 
  Country: None (occurrence: None)
  Receive Date: 20041201
  Receipt Date: 20041119
  Transmission Date: 20050328
  Serious: Yes (Hospitalization)
  Sender: FDA-Public Use
  Company Number: 2004096972

PATIENT
  Age: 59 Year
  Sex: Male

DRUGS (4)
  1. QUINAPRIL HCL [Suspect]
     Indication: HYPERTENSION
     Dosage: ORAL
     Route: 048
     Dates: end: 20040916
  2. ATORVASTATIN (ATORVASTATIN) [Concomitant]
  3. OXYMETAZOLINE (OXYMETAZOLINE) [Concomitant]
  4. AMLODIPINE [Concomitant]

REACTIONS (3)
  - ANGIONEUROTIC OEDEMA [None]
  - DYSPNOEA [None]
  - SWOLLEN TONGUE [None]
